FAERS Safety Report 8269436-5 (Version None)
Quarter: 2012Q2

REPORT INFORMATION
  Report Type: 
  Country: None (occurrence: None)
  Receive Date: 20120409
  Receipt Date: 20120313
  Transmission Date: 20120825
  Serious: No
  Sender: FDA-Public Use
  Company Number: US-ASTRAZENECA-2012SE17041

PATIENT
  Age: 59 Year
  Sex: Female
  Weight: 59 kg

DRUGS (1)
  1. BRILINTA [Suspect]
     Indication: POSTOPERATIVE CARE
     Route: 048
     Dates: start: 20120223

REACTIONS (2)
  - RASH [None]
  - PRURITUS [None]
